FAERS Safety Report 8508428-5 (Version None)
Quarter: 2012Q3

REPORT INFORMATION
  Report Type: 
  Country: None (occurrence: None)
  Receive Date: 20120713
  Receipt Date: 20120711
  Transmission Date: 20120928
  Serious: Yes (Other)
  Sender: FDA-Public Use
  Company Number: PHHY2012AU053167

PATIENT
  Sex: Male

DRUGS (2)
  1. LUVOX [Concomitant]
     Dosage: UNK
     Route: 048
     Dates: start: 20120501, end: 20120601
  2. ZOLEDRONOC ACID [Suspect]
     Indication: OSTEOGENESIS IMPERFECTA
     Dosage: 5 MG, UNK
     Route: 042
     Dates: start: 20120521

REACTIONS (2)
  - CONTUSION [None]
  - HAEMATOMA [None]
